FAERS Safety Report 10529952 (Version 2)
Quarter: 2014Q4

REPORT INFORMATION
  Report Type: Spontaneous
  Country: US (occurrence: US)
  Receive Date: 20141021
  Receipt Date: 20141103
  Transmission Date: 20150528
  Serious: Yes (Other)
  Sender: FDA-Public Use
  Company Number: US-AMGEN-USASP2014080111

PATIENT
  Age: 45 Year
  Sex: Female

DRUGS (11)
  1. MOBIC [Concomitant]
     Active Substance: MELOXICAM
     Dosage: UNK
  2. LASIX [Concomitant]
     Active Substance: FUROSEMIDE
     Dosage: UNK
  3. LORAZEPAM. [Concomitant]
     Active Substance: LORAZEPAM
     Dosage: UNK
  4. CLOBETASOL [Concomitant]
     Active Substance: CLOBETASOL
     Dosage: UNK
  5. MORPHINE SULFATE. [Concomitant]
     Active Substance: MORPHINE SULFATE
     Dosage: UNK
  6. METHADONE [Concomitant]
     Active Substance: METHADONE HYDROCHLORIDE
     Dosage: UNK
  7. TRETINOIN. [Concomitant]
     Active Substance: TRETINOIN
     Dosage: 0.025 %, UNK
  8. CLINDAMYCIN [Concomitant]
     Active Substance: CLINDAMYCIN\CLINDAMYCIN PHOSPHATE
  9. ENBREL [Suspect]
     Active Substance: ETANERCEPT
     Indication: PSORIASIS
     Dosage: 50 MG, 2 TIMES/WK
     Route: 058
  10. BACLOFEN. [Concomitant]
     Active Substance: BACLOFEN
     Dosage: UNK
  11. CLOBEX                             /00012002/ [Concomitant]
     Dosage: UNK

REACTIONS (10)
  - Injection site reaction [Recovering/Resolving]
  - Injection site urticaria [Recovering/Resolving]
  - Injection site swelling [Recovering/Resolving]
  - Injection site warmth [Recovering/Resolving]
  - Dizziness [Not Recovered/Not Resolved]
  - Malaise [Not Recovered/Not Resolved]
  - Injection site erythema [Recovering/Resolving]
  - Cellulitis [Recovered/Resolved]
  - Skin plaque [Not Recovered/Not Resolved]
  - Injection site nodule [Recovering/Resolving]

NARRATIVE: CASE EVENT DATE: 20141006
